FAERS Safety Report 10787086 (Version 3)
Quarter: 2015Q4

REPORT INFORMATION
  Report Type: Spontaneous
  Country: US (occurrence: US)
  Receive Date: 20150211
  Receipt Date: 20151229
  Transmission Date: 20160304
  Serious: No
  Sender: FDA-Public Use
  Company Number: US-GLAXOSMITHKLINE-A1088477A

PATIENT

DRUGS (3)
  1. LAMICTAL [Suspect]
     Active Substance: LAMOTRIGINE
     Dosage: 200 MG, TID
     Route: 048
     Dates: start: 2001
  2. LAMICTAL [Suspect]
     Active Substance: LAMOTRIGINE
     Indication: SEIZURE
     Dosage: 100 MG, UNKNOWN DOSING
     Route: 065
     Dates: start: 20060123
  3. MYSOLINE [Concomitant]
     Active Substance: PRIMIDONE

REACTIONS (10)
  - Speech disorder [Unknown]
  - Drug ineffective [Unknown]
  - Pain [Unknown]
  - Wrong technique in product usage process [Unknown]
  - Malaise [Unknown]
  - Emotional distress [Unknown]
  - Hypertension [Unknown]
  - Nasopharyngitis [Unknown]
  - Sinus disorder [Unknown]
  - Drug prescribing error [Unknown]
